FAERS Safety Report 19604448 (Version 3)
Quarter: 2021Q3

REPORT INFORMATION
  Report Type: Report from Study
  Country: AU (occurrence: AU)
  Receive Date: 20210723
  Receipt Date: 20210811
  Transmission Date: 20211014
  Serious: Yes (Hospitalization)
  Sender: FDA-Public Use
  Company Number: AU-SECURA BIO, INC.-2021-SECUR-AU003343

PATIENT
  Age: 6 Year
  Sex: Female
  Weight: 18.6 kg

DRUGS (2)
  1. LBH589 [Suspect]
     Active Substance: PANOBINOSTAT
     Dosage: 4 MG/M2
     Route: 048
     Dates: start: 20210715
  2. LBH589 [Suspect]
     Active Substance: PANOBINOSTAT
     Indication: RHABDOID TUMOUR
     Dosage: 5 MG, DAILY
     Route: 048
     Dates: start: 20210513, end: 20210709

REACTIONS (1)
  - Febrile neutropenia [Recovered/Resolved]

NARRATIVE: CASE EVENT DATE: 20210709
